FAERS Safety Report 4934025-4 (Version None)
Quarter: 2006Q1

REPORT INFORMATION
  Report Type: 
  Country: None (occurrence: None)
  Receive Date: 20060303
  Receipt Date: 20060223
  Transmission Date: 20060701
  Serious: Yes (Death)
  Sender: FDA-Public Use
  Company Number: FRWYE423423FEB06

PATIENT
  Age: 51 Year
  Sex: Male

DRUGS (2)
  1. TIGECYCLINE (TIGECYCLINE, INJECTION) [Suspect]
     Indication: ACINETOBACTER INFECTION
     Dosage: INTRAVENOUS
     Route: 042
     Dates: start: 20051101
  2. TIGECYCLINE (TIGECYCLINE, INJECTION) [Suspect]
     Indication: PNEUMONIA BACTERIAL
     Dosage: INTRAVENOUS
     Route: 042
     Dates: start: 20051101

REACTIONS (6)
  - ACUTE RESPIRATORY DISTRESS SYNDROME [None]
  - GASTROINTESTINAL ANASTOMOTIC LEAK [None]
  - LARGE INTESTINE PERFORATION [None]
  - PERITONITIS [None]
  - POST PROCEDURAL COMPLICATION [None]
  - SHOCK [None]
